FAERS Safety Report 6268093-7 (Version None)
Quarter: 2009Q3

REPORT INFORMATION
  Report Type: 
  Country: None (occurrence: None)
  Receive Date: 20090715
  Receipt Date: 20071113
  Transmission Date: 20100115
  Serious: Yes (Other)
  Sender: FDA-Public Use
  Company Number: US-ASTRAZENECA-2006UW21953

PATIENT
  Age: 323 Month
  Sex: Female
  Weight: 104.5 kg

DRUGS (26)
  1. SEROQUEL [Suspect]
     Indication: DEPRESSION
     Route: 048
     Dates: start: 20040701
  2. SEROQUEL [Suspect]
     Indication: ANXIETY
     Route: 048
     Dates: start: 20040701
  3. SEROQUEL [Suspect]
     Indication: INSOMNIA
     Route: 048
     Dates: start: 20040701
  4. SEROQUEL [Suspect]
     Dosage: 25MG-100MG
     Route: 048
     Dates: start: 20041203
  5. SEROQUEL [Suspect]
     Dosage: 25MG-100MG
     Route: 048
     Dates: start: 20041203
  6. SEROQUEL [Suspect]
     Dosage: 25MG-100MG
     Route: 048
     Dates: start: 20041203
  7. GEODON [Concomitant]
  8. ZYPREXA [Concomitant]
  9. DEPAKOTE [Concomitant]
  10. GEXAPRO [Concomitant]
  11. KLONOPIN [Concomitant]
  12. NEVROTIN [Concomitant]
  13. XANAX [Concomitant]
  14. BENTYL [Concomitant]
  15. ASACOL [Concomitant]
  16. METFORMIN HCL [Concomitant]
  17. LIPITOR [Concomitant]
  18. LEXAPRO [Concomitant]
  19. GABITRIL [Concomitant]
  20. ZOVIRAX [Concomitant]
  21. NOVOLIN R [Concomitant]
  22. TYLENOL [Concomitant]
  23. VICODIN [Concomitant]
  24. ZOLOFT [Concomitant]
  25. HYDROCHLOROTHIAZIDE [Concomitant]
  26. ZYRTEC [Concomitant]

REACTIONS (6)
  - BLOOD CHOLESTEROL INCREASED [None]
  - DIABETES MELLITUS [None]
  - DIABETIC KETOACIDOSIS [None]
  - MENTAL DISORDER [None]
  - NEUROPATHY PERIPHERAL [None]
  - OBESITY [None]
